FAERS Safety Report 7600027-2 (Version None)
Quarter: 2011Q3

REPORT INFORMATION
  Report Type: 
  Country: None (occurrence: None)
  Receive Date: 20110711
  Receipt Date: 20110701
  Transmission Date: 20111222
  Serious: Yes (Other)
  Sender: FDA-Public Use
  Company Number: GB-JNJFOC-20110700329

PATIENT
  Age: 30 Year
  Sex: Male

DRUGS (3)
  1. HYPNOTICS [Suspect]
     Indication: PRODUCT USED FOR UNKNOWN INDICATION
     Route: 065
  2. HALOPERIDOL [Suspect]
     Indication: PRODUCT USED FOR UNKNOWN INDICATION
     Route: 065
  3. DENZAPINE [Suspect]
     Indication: PERSONALITY DISORDER
     Route: 065

REACTIONS (1)
  - MULTIPLE DRUG OVERDOSE [None]
